FAERS Safety Report 5316759-5 (Version None)
Quarter: 2007Q2

REPORT INFORMATION
  Report Type: 
  Country: None (occurrence: None)
  Receive Date: 20070501
  Receipt Date: 20070501
  Transmission Date: 20071010
  Serious: Yes (Life-Threatening, Hospitalization, Other)
  Sender: FDA-Public Use
  Company Number: None

PATIENT
  Age: 23 Year
  Sex: Male
  Weight: 89.8122 kg

DRUGS (1)
  1. VIOXX [Suspect]
     Indication: ARTHRALGIA
     Dosage: HOSPITAL DOSAGE DAILY IV DRIP
     Route: 041
     Dates: start: 20040502, end: 20040515

REACTIONS (4)
  - CEREBROVASCULAR ACCIDENT [None]
  - LEARNING DISABILITY [None]
  - PARALYSIS [None]
  - THROMBOSIS [None]
